FAERS Safety Report 6723289-2 (Version None)
Quarter: 2010Q2

REPORT INFORMATION
  Report Type: 
  Country: None (occurrence: None)
  Receive Date: 20100511
  Receipt Date: 20091209
  Transmission Date: 20101027
  Serious: Yes (Hospitalization)
  Sender: FDA-Public Use
  Company Number: 06-000071

PATIENT
  Age: 49 Year
  Sex: Female
  Weight: 97 kg

DRUGS (2)
  1. TACLONEX [Suspect]
     Indication: PSORIASIS
     Dosage: 0.5 TO 1.0 TUBE
     Dates: start: 20050725, end: 20051205
  2. RAPTIVA [Suspect]
     Indication: PSORIASIS
     Dosage: 66 MG WEEKLY, SUBCUTANEOUS
     Route: 058
     Dates: start: 20050723, end: 20050731

REACTIONS (6)
  - CONDITION AGGRAVATED [None]
  - DERMATITIS EXFOLIATIVE [None]
  - GENERAL PHYSICAL HEALTH DETERIORATION [None]
  - OFF LABEL USE [None]
  - OVERDOSE [None]
  - PSORIASIS [None]
